FAERS Safety Report 14416255 (Version 6)
Quarter: 2018Q1

REPORT INFORMATION
  Report Type: Spontaneous
  Country: EC (occurrence: EC)
  Receive Date: 20180122
  Receipt Date: 20180215
  Transmission Date: 20180509
  Serious: Yes (Death, Hospitalization, Other)
  Sender: FDA-Public Use
  Company Number: EC-B.I. PHARMACEUTICALS,INC./RIDGEFIELD-2018-BI-003432

PATIENT
  Age: 85 Year
  Sex: Female
  Weight: 45 kg

DRUGS (2)
  1. PRAXBIND [Suspect]
     Active Substance: IDARUCIZUMAB
     Indication: GASTROINTESTINAL HAEMORRHAGE
     Route: 042
     Dates: start: 20180103, end: 20180103
  2. INSULIN GLARGINE [Concomitant]
     Active Substance: INSULIN GLARGINE
     Indication: PRODUCT USED FOR UNKNOWN INDICATION
     Route: 065

REACTIONS (2)
  - Hypovolaemic shock [Fatal]
  - Gastrointestinal haemorrhage [Fatal]

NARRATIVE: CASE EVENT DATE: 20180103
